FAERS Safety Report 9038491 (Version 1)
Quarter: 2013Q1

REPORT INFORMATION
  Report Type: Report from Study
  Country: US (occurrence: US)
  Receive Date: 20130129
  Receipt Date: 20130129
  Transmission Date: 20140127
  Serious: No
  Sender: FDA-Public Use
  Company Number: US-ABBOTT-12P-163-0935261-00

PATIENT
  Age: 43 Year
  Sex: Female

DRUGS (9)
  1. HUMIRA 40 MG/0.8 ML PEN [Suspect]
     Indication: ANKYLOSING SPONDYLITIS
     Dates: start: 20120408, end: 20120506
  2. PRILOSEC [Concomitant]
     Indication: GASTROOESOPHAGEAL REFLUX DISEASE
  3. ZYRTEC [Concomitant]
     Indication: HYPERSENSITIVITY
  4. UNKNOWN ALLERGY SHOTS [Concomitant]
     Indication: HYPERSENSITIVITY
     Dosage: MONTHLY
  5. EXCEDRIN MIGRAINE [Concomitant]
     Indication: HEADACHE
  6. MIRCETTE [Concomitant]
     Indication: CONTRACEPTION
  7. VICODIN [Concomitant]
     Indication: ANKYLOSING SPONDYLITIS
     Dosage: 5/500MG
  8. VICODIN [Concomitant]
     Indication: JOINT INJURY
  9. FLEXERIL [Concomitant]
     Indication: MYALGIA

REACTIONS (2)
  - Sinusitis [Recovered/Resolved]
  - Pain [Recovered/Resolved]
